FAERS Safety Report 4506308-3 (Version None)
Quarter: 2004Q4

REPORT INFORMATION
  Report Type: 
  Country: None (occurrence: None)
  Receive Date: 20041025
  Receipt Date: 20031209
  Transmission Date: 20050328
  Serious: Yes (Hospitalization)
  Sender: FDA-Public Use
  Company Number: US-JNJFOC-20031103363

PATIENT
  Age: 55 Year
  Sex: Female
  Weight: 81.6475 kg

DRUGS (13)
  1. REMICADE [Suspect]
     Indication: RHEUMATOID ARTHRITIS
     Dosage: 700 MG, INTRAVENOUS
     Route: 042
     Dates: start: 20031117
  2. METHOTREXATE SODIUM [Concomitant]
  3. CLINDAMYCIN (CLINDAMYCIN) [Concomitant]
  4. ASPIRIN [Concomitant]
  5. LIPITOR [Concomitant]
  6. PLAVIX [Concomitant]
  7. GLUCATROL (GLIPIZIDE) [Concomitant]
  8. GLUCOPHAGE [Concomitant]
  9. PAXIL [Concomitant]
  10. LOPRESSOR [Concomitant]
  11. SOLU-MEDROL [Concomitant]
  12. BENADRYL [Concomitant]
  13. TAGAMET [Concomitant]

REACTIONS (4)
  - INFUSION RELATED REACTION [None]
  - MYOCARDIAL INFARCTION [None]
  - PRURITUS [None]
  - SINUSITIS [None]
